FAERS Safety Report 8599354 (Version 2)
Quarter: 2013Q1

REPORT INFORMATION
  Report Type: Spontaneous
  Country: US (occurrence: US)
  Receive Date: 20120605
  Receipt Date: 20130125
  Transmission Date: 20140127
  Serious: Yes (Hospitalization, Congenital Anomaly)
  Sender: FDA-Public Use
  Company Number: US-GLAXOSMITHKLINE-A0979888A

PATIENT
  Age: 0 Year
  Sex: Male
  Weight: 2.3 kg

DRUGS (2)
  1. PAXIL [Suspect]
     Indication: PRODUCT USED FOR UNKNOWN INDICATION
     Route: 064
  2. PRENATAL VITAMINS [Concomitant]

REACTIONS (6)
  - Ventricular septal defect [Unknown]
  - Congenital aortic anomaly [Unknown]
  - Right ventricle outflow tract obstruction [Unknown]
  - Atrial septal defect [Unknown]
  - Cardiac failure congestive [Unknown]
  - Foetal exposure during pregnancy [Unknown]
